FAERS Safety Report 4321221-2 (Version None)
Quarter: 2004Q1

REPORT INFORMATION
  Report Type: 
  Country: None (occurrence: None)
  Receive Date: 20040322
  Receipt Date: 20040322
  Transmission Date: 20041129
  Serious: No
  Sender: FDA-Public Use
  Company Number: None

PATIENT
  Sex: Male
  Weight: 100.6985 kg

DRUGS (7)
  1. CLOZAPINE [Suspect]
     Indication: SCHIZOAFFECTIVE DISORDER
     Dosage: 300 MG MORNING ORAL,400 MG BEDTIME ORAL
     Route: 048
     Dates: start: 20030621, end: 20040226
  2. . [Concomitant]
  3. ATENOLOL [Concomitant]
  4. CLOTRIMAZOLE [Concomitant]
  5. DOCUSATE [Concomitant]
  6. FAMOTIDINE [Concomitant]
  7. SIMVASTATIN [Concomitant]

REACTIONS (1)
  - NEUTROPHIL COUNT DECREASED [None]
